FAERS Safety Report 24366499 (Version 1)
Quarter: 2024Q3

REPORT INFORMATION
  Report Type: Spontaneous
  Country: CN (occurrence: CN)
  Receive Date: 20240926
  Receipt Date: 20240926
  Transmission Date: 20241016
  Serious: Yes (Life-Threatening)
  Sender: BAYER
  Company Number: CN-BAYER-2024A137558

PATIENT
  Age: 73 Year
  Sex: Female
  Weight: 50 kg

DRUGS (2)
  1. ULTRAVIST [Suspect]
     Active Substance: IOPROMIDE
     Indication: Angiogram peripheral
     Dosage: 100 ML, ONCE
     Route: 042
     Dates: start: 20240920, end: 20240920
  2. ULTRAVIST [Suspect]
     Active Substance: IOPROMIDE
     Indication: Diabetic foot

REACTIONS (7)
  - Anaphylactic shock [Recovering/Resolving]
  - Pruritus [None]
  - Depressed level of consciousness [Recovered/Resolved]
  - Cold sweat [None]
  - Pulse abnormal [Recovering/Resolving]
  - Blood pressure immeasurable [Recovered/Resolved]
  - Heart rate increased [Recovering/Resolving]

NARRATIVE: CASE EVENT DATE: 20240920
